FAERS Safety Report 7399455-2 (Version None)
Quarter: 2011Q1

REPORT INFORMATION
  Report Type: 
  Country: None (occurrence: None)
  Receive Date: 20110329
  Receipt Date: 20110321
  Transmission Date: 20110831
  Serious: Yes (Hospitalization)
  Sender: FDA-Public Use
  Company Number: UTC-005817

PATIENT
  Age: 64 Year
  Sex: Female
  Weight: 62 kg

DRUGS (3)
  1. REMODULIN [Suspect]
     Dosage: 100.8 UG/KG (0.07 UG/KG, 1 IN 1 MIN), INTRAVENOUS
     Route: 042
     Dates: start: 20091015
  2. REVATIO [Concomitant]
  3. COUMADIN [Concomitant]

REACTIONS (6)
  - OEDEMA [None]
  - DIARRHOEA [None]
  - ASTHENIA [None]
  - INTERNATIONAL NORMALISED RATIO INCREASED [None]
  - MUSCLE DISORDER [None]
  - ANAEMIA [None]
